FAERS Safety Report 4777092-3 (Version None)
Quarter: 2005Q3

REPORT INFORMATION
  Report Type: 
  Country: None (occurrence: None)
  Receive Date: 20050923
  Receipt Date: 20050909
  Transmission Date: 20060218
  Serious: Yes (Death, Hospitalization)
  Sender: FDA-Public Use
  Company Number: IT-JNJFOC-20050900668

PATIENT
  Sex: Female

DRUGS (5)
  1. REMINYL [Suspect]
     Route: 048
     Dates: start: 20050304, end: 20050602
  2. GLIBOMET [Suspect]
     Route: 048
  3. GLIBOMET [Suspect]
     Indication: DRUG USE FOR UNKNOWN INDICATION
     Dosage: 1 DOSE = 1 UNIT
     Route: 048
  4. ASPIRIN [Suspect]
     Indication: DRUG USE FOR UNKNOWN INDICATION
     Route: 048
  5. ESCITALOPRAM OXALATE [Concomitant]
     Route: 065

REACTIONS (6)
  - APNOEA [None]
  - CONFUSIONAL STATE [None]
  - CONVULSION [None]
  - DEATH [None]
  - DYSPNOEA [None]
  - FALL [None]
